FAERS Safety Report 8002661-7 (Version None)
Quarter: 2011Q4

REPORT INFORMATION
  Report Type: 
  Country: None (occurrence: None)
  Receive Date: 20111222
  Receipt Date: 20111212
  Transmission Date: 20120403
  Serious: Yes (Death, Hospitalization)
  Sender: FDA-Public Use
  Company Number: KR-BAXTER-2011BH039447

PATIENT
  Age: 53 Year
  Sex: Male
  Weight: 76 kg

DRUGS (11)
  1. ALLOPURINOL [Concomitant]
     Indication: URINARY TRACT DISORDER
     Route: 048
     Dates: start: 20101117, end: 20111211
  2. RABEPRAZOLE SODIUM [Concomitant]
     Indication: ANTACID THERAPY
     Route: 048
     Dates: start: 20101026, end: 20111211
  3. EXTRANEAL [Suspect]
     Indication: PERITONEAL DIALYSIS
     Route: 033
     Dates: start: 20110418, end: 20111210
  4. NEPHVITA [Concomitant]
     Indication: VITAMIN SUPPLEMENTATION
     Route: 048
     Dates: start: 20101026, end: 20111211
  5. CLOPIDOGREL [Concomitant]
     Indication: ANTIPLATELET THERAPY
     Route: 048
     Dates: start: 20101026
  6. CALCIUM CARBONATE [Concomitant]
     Indication: CHELATION THERAPY
     Route: 048
     Dates: start: 20101028, end: 20111211
  7. EXTRANEAL [Suspect]
     Route: 033
     Dates: start: 20111213, end: 20111214
  8. EXTRANEAL [Suspect]
     Route: 033
     Dates: start: 20111213, end: 20111214
  9. EXTRANEAL [Suspect]
     Indication: RENAL FAILURE CHRONIC
     Route: 033
     Dates: start: 20110418, end: 20111210
  10. BEZAFIBRATE [Concomitant]
     Indication: HYPERLIPIDAEMIA
     Route: 048
     Dates: start: 20110530, end: 20111211
  11. ACETYLSALICYLIC ACID SRT [Concomitant]
     Indication: ANTIPLATELET THERAPY
     Route: 048
     Dates: start: 20101026, end: 20111211

REACTIONS (2)
  - RHABDOMYOLYSIS [None]
  - ISCHAEMIC CARDIOMYOPATHY [None]
